FAERS Safety Report 16536755 (Version 1)
Quarter: 2019Q3

REPORT INFORMATION
  Report Type: Spontaneous
  Country: US (occurrence: US)
  Receive Date: 20190706
  Receipt Date: 20190706
  Transmission Date: 20191004
  Serious: No
  Sender: FDA-Public Use
  Company Number: US-TEVA-2019-US-1067987

PATIENT
  Sex: Female

DRUGS (1)
  1. TEVA^S METFORMIN HYDROCHLORIDE EXTENDED-RELEASE [Suspect]
     Active Substance: METFORMIN HYDROCHLORIDE
     Dosage: 2 DOSAGE FORMS DAILY; EXTENDED-RELEASE
     Route: 065

REACTIONS (9)
  - Allergic reaction to excipient [Unknown]
  - Blood glucose increased [Unknown]
  - Arthralgia [Unknown]
  - Joint swelling [Unknown]
  - Weight increased [Unknown]
  - Drug ineffective [Unknown]
  - Product solubility abnormal [Unknown]
  - Product formulation issue [Unknown]
  - Pruritus [Unknown]
